FAERS Safety Report 5081551-6 (Version None)
Quarter: 2006Q3

REPORT INFORMATION
  Report Type: 
  Country: None (occurrence: None)
  Receive Date: 20060811
  Receipt Date: 20060803
  Transmission Date: 20061208
  Serious: Yes (Hospitalization, Other)
  Sender: FDA-Public Use
  Company Number: 234958K06USA

PATIENT
  Age: 53 Year
  Sex: Male

DRUGS (1)
  1. REBIF [Suspect]
     Indication: MULTIPLE SCLEROSIS
     Dosage: 44 MCG; 3 IN 1 WEEKS, SUBCUTANEOUS
     Route: 058
     Dates: start: 20060227

REACTIONS (2)
  - GASTRIC ULCER [None]
  - WEIGHT DECREASED [None]
